FAERS Safety Report 7743087-0 (Version None)
Quarter: 2011Q3

REPORT INFORMATION
  Report Type: 
  Country: None (occurrence: None)
  Receive Date: 20110912
  Receipt Date: 20110829
  Transmission Date: 20111222
  Serious: Yes (Hospitalization, Other)
  Sender: FDA-Public Use
  Company Number: US-ELI_LILLY_AND_COMPANY-US201107007189

PATIENT
  Sex: Female

DRUGS (19)
  1. FORTEO [Suspect]
     Indication: OSTEOPOROSIS
     Dosage: 20 UG, QD
     Route: 065
  2. SPIRIVA [Concomitant]
     Dosage: UNK UNK, UNKNOWN
  3. CITALOPRAM HYDROBROMIDE [Concomitant]
     Dosage: 40 MG, QD
  4. BENICAR [Concomitant]
     Dosage: 40 MG, QD
  5. LYRICA [Concomitant]
     Dosage: 1 DF, BID
  6. NEXIUM [Concomitant]
     Dosage: 40 MG, BID
  7. OXYGEN [Concomitant]
     Dosage: 2 L, AT NIGHT
  8. LIPITOR [Concomitant]
     Dosage: 40 MG, QD
  9. PREDNISONE [Concomitant]
     Dosage: 5 MG, QD
  10. COMBIVENT [Concomitant]
     Dosage: 2 DF, EVERY 4 OR 6 HOURS
  11. MULTI-VITAMIN [Concomitant]
     Dosage: 1 DF, QD
  12. ALBUTEROL SULFATE [Concomitant]
     Dosage: UNK UNK, UNKNOWN
  13. OXYGEN [Concomitant]
     Dosage: 2 L, CONTINUOUS 24 HOURS A DAY
  14. AGGRENOX [Concomitant]
     Dosage: 2 DF, QD
  15. HYDROCODONE [Concomitant]
     Dosage: UNK UNK, UNKNOWN
     Route: 065
  16. TRAZODONE HCL [Concomitant]
     Dosage: 150 MG, QD
  17. SYMBICORT [Concomitant]
     Dosage: 2 DF, QD
  18. CALTRATE                           /00944201/ [Concomitant]
     Dosage: 500 MG, QD
  19. FISH OIL [Concomitant]
     Dosage: 1 DF, QD

REACTIONS (6)
  - SPINAL COMPRESSION FRACTURE [None]
  - HIP FRACTURE [None]
  - PNEUMONIA [None]
  - BACK PAIN [None]
  - HIP ARTHROPLASTY [None]
  - COMPLICATION OF DEVICE INSERTION [None]
